FAERS Safety Report 9777567 (Version 4)
Quarter: 2014Q4

REPORT INFORMATION
  Report Type: Spontaneous
  Country: DK (occurrence: DK)
  Receive Date: 20131222
  Receipt Date: 20141229
  Transmission Date: 20150529
  Serious: Yes (Other)
  Sender: FDA-Public Use
  Company Number: DK-TEVA-451539ISR

PATIENT
  Age: 60 Year
  Sex: Female

DRUGS (3)
  1. SIMVASTATIN. [Suspect]
     Active Substance: SIMVASTATIN
     Dosage: 20 MG
  2. SIMVASTATIN. [Suspect]
     Active Substance: SIMVASTATIN
     Indication: BLOOD CHOLESTEROL INCREASED
     Dosage: 40 MILLIGRAM DAILY; STRENGTH: 40 MG
     Dates: start: 2008, end: 20110310
  3. CRESTOR [Suspect]
     Active Substance: ROSUVASTATIN CALCIUM
     Indication: BLOOD CHOLESTEROL INCREASED
     Dosage: STRENGTH: FIRST 20 MG DAILY, LATER 40 MG DAILY
     Dates: start: 200902, end: 20110310

REACTIONS (10)
  - Muscular weakness [Unknown]
  - Angina pectoris [Unknown]
  - Muscle rigidity [Unknown]
  - Blood cholesterol increased [Unknown]
  - Arthralgia [Unknown]
  - Myalgia [Unknown]
  - Drug effect incomplete [Unknown]
  - Myalgia [Unknown]
  - Musculoskeletal stiffness [Unknown]
  - Myocardial infarction [Unknown]

NARRATIVE: CASE EVENT DATE: 20110908
